FAERS Safety Report 8320852-2 (Version None)
Quarter: 2012Q2

REPORT INFORMATION
  Report Type: 
  Country: None (occurrence: None)
  Receive Date: 20120430
  Receipt Date: 20120423
  Transmission Date: 20120825
  Serious: Yes (Other)
  Sender: FDA-Public Use
  Company Number: PHHY2012JP023500

PATIENT
  Age: 81 Year
  Sex: Female

DRUGS (3)
  1. EXJADE [Suspect]
     Indication: IRON OVERLOAD
     Dosage: 125 MG, DAILY
     Route: 048
     Dates: start: 20111101
  2. BLOOD TRANSFUSION, AUXILIARY PRODUCTS [Concomitant]
     Dosage: 8 U, QMO
  3. LOPERAMIDE HCL [Concomitant]
     Dosage: 2 DF, UNK
     Route: 048

REACTIONS (2)
  - HAEMORRHAGE [None]
  - DIARRHOEA [None]
